FAERS Safety Report 6470974-6 (Version None)
Quarter: 2009Q4

REPORT INFORMATION
  Report Type: 
  Country: None (occurrence: None)
  Receive Date: 20091203
  Receipt Date: 20080117
  Transmission Date: 20100525
  Serious: Yes (Death)
  Sender: FDA-Public Use
  Company Number: TR-ELI_LILLY_AND_COMPANY-TR200801003486

PATIENT
  Sex: Female

DRUGS (2)
  1. HUMALOG MIX 75/25 [Suspect]
     Indication: TYPE 2 DIABETES MELLITUS
     Dosage: 20 UNITS/MORNING
     Route: 058
     Dates: start: 20070101
  2. HUMALOG MIX 75/25 [Suspect]
     Dosage: 8 U, EACH EVENING
     Route: 058
     Dates: start: 20070101

REACTIONS (1)
  - NERVOUS SYSTEM DISORDER [None]
